FAERS Safety Report 7477547-7 (Version None)
Quarter: 2011Q2

REPORT INFORMATION
  Report Type: 
  Country: None (occurrence: None)
  Receive Date: 20110511
  Receipt Date: 20110511
  Transmission Date: 20111010
  Serious: Yes (Death)
  Sender: FDA-Public Use
  Company Number: None

PATIENT
  Age: 87 Year
  Sex: Male
  Weight: 87.7 kg

DRUGS (14)
  1. HEPARIN [Concomitant]
  2. QUETIAPINE [Concomitant]
  3. VANCOMYCIN [Suspect]
     Indication: OSTEOMYELITIS
     Dosage: 1 GRAM Q 12 HOURS IV
     Route: 042
     Dates: start: 20110216, end: 20110221
  4. OXYCODONE HCL [Concomitant]
  5. SERTRALINE HYDROCHLORIDE [Concomitant]
  6. VANCOMYCIN [Suspect]
  7. GLIPIZIDE [Concomitant]
  8. REGULAR INSULIN [Concomitant]
  9. SIMVASTATIN [Concomitant]
  10. LISINOPRIL [Concomitant]
  11. ROSIGLITAZONE [Concomitant]
  12. TEMAZ [Concomitant]
  13. CILOSTAZOL [Concomitant]
  14. PANTOPRAZOLE [Concomitant]

REACTIONS (6)
  - TOE AMPUTATION [None]
  - PRODUCT CONTAMINATION PHYSICAL [None]
  - RENAL IMPAIRMENT [None]
  - DIALYSIS [None]
  - BLOOD CREATININE INCREASED [None]
  - PRODUCT CONTAMINATION [None]
